FAERS Safety Report 8593631-9 (Version None)
Quarter: 2012Q3

REPORT INFORMATION
  Report Type: 
  Country: None (occurrence: None)
  Receive Date: 20120814
  Receipt Date: 20120809
  Transmission Date: 20120928
  Serious: Yes (Hospitalization)
  Sender: FDA-Public Use
  Company Number: JP-PFIZER INC-2012125191

PATIENT
  Age: 29 Year
  Sex: Female
  Weight: 57 kg

DRUGS (6)
  1. LEVOTHYROXINE SODIUM [Concomitant]
     Indication: HYPOPITUITARISM
     Dosage: 50 MG, 1X/DAY
     Route: 048
     Dates: start: 20071221
  2. ALENDRONATE SODIUM [Concomitant]
     Dosage: 35 MG, WEEKLY
     Route: 048
     Dates: start: 20071221
  3. BEZATOL [Concomitant]
     Dosage: 400 MG, 2X/DAY
     Route: 048
     Dates: start: 20071221
  4. CORTRIL [Concomitant]
     Indication: HYPOPITUITARISM
     Dosage: 5 MG, 1X/DAY
     Route: 048
     Dates: start: 20071221
  5. ESTRANA [Concomitant]
     Indication: HYPOPITUITARISM
     Dosage: 0.3 MG, 1X/DAY
     Route: 062
     Dates: start: 20071221
  6. GENOTROPIN [Suspect]
     Indication: BLOOD GROWTH HORMONE DECREASED
     Dosage: 0.3 MG, 1X/DAY
     Route: 058
     Dates: start: 20081211, end: 20120522

REACTIONS (2)
  - NEOPLASM RECURRENCE [None]
  - TUMOUR HAEMORRHAGE [None]
